FAERS Safety Report 9720071 (Version 1)
Quarter: 2013Q4

REPORT INFORMATION
  Report Type: Report from Study
  Country: GB (occurrence: GB)
  Receive Date: 20131128
  Receipt Date: 20131128
  Transmission Date: 20140711
  Serious: Yes (Hospitalization)
  Sender: FDA-Public Use
  Company Number: GB-AMGEN-GBRCT2013084054

PATIENT
  Age: 28 Year
  Sex: Male
  Weight: 91 kg

DRUGS (5)
  1. ETANERCEPT [Suspect]
     Indication: PRODUCT USED FOR UNKNOWN INDICATION
     Dosage: 50 MG, QWK
     Route: 065
  2. LAMOTRIGINE [Concomitant]
     Dosage: UNK
     Dates: start: 20130930
  3. PROZAC [Concomitant]
     Dosage: UNK
     Dates: start: 20130930
  4. PANTOPRAZOLE [Concomitant]
     Dosage: 40 MG, QD
     Dates: start: 20130701
  5. ESOMEPRAZOLE [Concomitant]
     Dosage: 20 MG, QD
     Dates: start: 20120701, end: 20130701

REACTIONS (2)
  - Pyrexia [Recovered/Resolved]
  - Oropharyngeal pain [Recovered/Resolved]
